FAERS Safety Report 15356595 (Version 1)
Quarter: 2018Q4

REPORT INFORMATION
  Report Type: Report from Study
  Country: US (occurrence: US)
  Receive Date: 20180906
  Receipt Date: 20180906
  Transmission Date: 20190204
  Serious: Yes (Death)
  Sender: FDA-Public Use
  Company Number: US-GENERICUS, INC.-2018GNR00003

PATIENT
  Age: 68 Year
  Sex: Female

DRUGS (1)
  1. TOBRAMYCIN. [Suspect]
     Active Substance: TOBRAMYCIN
     Indication: BRONCHIECTASIS
     Dosage: 5 ML, DAILY EVERY OTHER MONTH
     Route: 055
     Dates: start: 20180706

REACTIONS (1)
  - Death [Fatal]

NARRATIVE: CASE EVENT DATE: 20180810
